FAERS Safety Report 8960126 (Version 3)
Quarter: 2013Q1

REPORT INFORMATION
  Report Type: Report from Study
  Country: JP (occurrence: JP)
  Receive Date: 20121211
  Receipt Date: 20130221
  Transmission Date: 20140127
  Serious: Yes (Disabling)
  Sender: FDA-Public Use
  Company Number: JP-GLAXOSMITHKLINE-B0850911A

PATIENT
  Age: 73 Year
  Sex: Female
  Weight: 54 kg

DRUGS (9)
  1. TYKERB [Suspect]
     Indication: BREAST CANCER
     Route: 048
     Dates: start: 20110922, end: 20111027
  2. TYKERB [Suspect]
     Indication: BREAST CANCER
     Route: 048
     Dates: start: 20111031, end: 20120122
  3. TYKERB [Suspect]
     Indication: BREAST CANCER
     Route: 048
     Dates: start: 20120423
  4. XELODA [Suspect]
     Route: 048
     Dates: start: 20110922, end: 20111016
  5. XELODA [Suspect]
     Route: 048
     Dates: start: 20111017, end: 20120112
  6. XELODA [Suspect]
     Route: 048
     Dates: start: 20120423, end: 20120507
  7. TAXOL [Suspect]
  8. BLOPRESS [Concomitant]
     Indication: HYPERTENSION
     Route: 048
     Dates: start: 20101215
  9. DEPAKENE [Concomitant]
     Indication: CONVULSION
     Route: 048
     Dates: start: 20110818

REACTIONS (3)
  - Rash [Recovered/Resolved]
  - Conjunctivitis [Recovering/Resolving]
  - Conjunctival disorder [Recovering/Resolving]
